FAERS Safety Report 17804763 (Version 2)
Quarter: 2020Q2

REPORT INFORMATION
  Report Type: Spontaneous
  Country: US (occurrence: US)
  Receive Date: 20200519
  Receipt Date: 20200601
  Transmission Date: 20200714
  Serious: Yes (Other)
  Sender: FDA-Public Use
  Company Number: US-PFIZER INC-2020198786

PATIENT
  Age: 84 Year
  Sex: Male
  Weight: 95.25 kg

DRUGS (1)
  1. PREGABALIN. [Suspect]
     Active Substance: PREGABALIN
     Dosage: 100 MG
     Route: 048

REACTIONS (1)
  - Neuropathy peripheral [Unknown]
